FAERS Safety Report 5952688-1 (Version None)
Quarter: 2008Q4

REPORT INFORMATION
  Report Type: 
  Country: None (occurrence: None)
  Receive Date: 20081114
  Receipt Date: 20081104
  Transmission Date: 20090506
  Serious: Yes (Other)
  Sender: FDA-Public Use
  Company Number: US-RANBAXY-2008US-19119

PATIENT

DRUGS (3)
  1. ISOTRETINOIN [Suspect]
     Indication: ACNE
     Dosage: UNK, UNK
     Route: 048
  2. ACCUTANE [Suspect]
     Indication: ACNE
     Dosage: 30 MG, QD
     Route: 048
     Dates: end: 20080901
  3. MINOCYCLINE HCL [Suspect]
     Indication: LUPUS-LIKE SYNDROME

REACTIONS (2)
  - LUPUS-LIKE SYNDROME [None]
  - PNEUMONIA [None]
